FAERS Safety Report 8815956 (Version 2)
Quarter: 2014Q3

REPORT INFORMATION
  Report Type: Report from Study
  Country: US (occurrence: US)
  Receive Date: 20120928
  Receipt Date: 20140908
  Transmission Date: 20150326
  Serious: Yes (Hospitalization, Other)
  Sender: FDA-Public Use
  Company Number: US-ROCHE-1124443

PATIENT
  Sex: Female
  Weight: 88 kg

DRUGS (4)
  1. XELODA [Suspect]
     Active Substance: CAPECITABINE
     Indication: BREAST CANCER FEMALE
     Route: 048
  2. NAVELBINE [Concomitant]
     Active Substance: VINORELBINE TARTRATE
  3. AVASTIN [Suspect]
     Active Substance: BEVACIZUMAB
     Indication: BREAST CANCER FEMALE
     Route: 042
     Dates: start: 20060508
  4. AVASTIN [Suspect]
     Active Substance: BEVACIZUMAB
     Indication: BREAST CANCER METASTATIC

REACTIONS (7)
  - Metastases to liver [Unknown]
  - Ulcer [Unknown]
  - Metastases to lung [Unknown]
  - Breast pain [Unknown]
  - Toxicity to various agents [Unknown]
  - Clostridium difficile colitis [Unknown]
  - Off label use [Unknown]
